FAERS Safety Report 10910809 (Version 2)
Quarter: 2015Q1

REPORT INFORMATION
  Report Type: Spontaneous
  Country: JP (occurrence: JP)
  Receive Date: 20150312
  Receipt Date: 20150327
  Transmission Date: 20150721
  Serious: Yes (Disabling)
  Sender: FDA-Public Use
  Company Number: JP-ASTRAZENECA-2015SE21676

PATIENT
  Age: 48 Year
  Sex: Male
  Weight: 107 kg

DRUGS (8)
  1. FORXIGA [Suspect]
     Active Substance: DAPAGLIFLOZIN
     Indication: TYPE 2 DIABETES MELLITUS
     Route: 048
     Dates: start: 20140526
  2. TSUMURA INCHINGOREISAN EXTRACT GRANULES [Suspect]
     Active Substance: HERBALS
     Indication: ILL-DEFINED DISORDER
     Route: 048
     Dates: start: 20121015
  3. OMEPRAL [Concomitant]
     Active Substance: OMEPRAZOLE
     Route: 048
     Dates: start: 20111009
  4. GLIBENCLAMIDE [Concomitant]
     Active Substance: GLYBURIDE
     Route: 048
     Dates: start: 20090629
  5. ONGLYZA [Concomitant]
     Active Substance: SAXAGLIPTIN HYDROCHLORIDE
     Route: 048
     Dates: start: 20130514
  6. VOGLIBOSE [Concomitant]
     Active Substance: VOGLIBOSE
     Route: 048
     Dates: start: 20100624
  7. CRESTOR [Concomitant]
     Active Substance: ROSUVASTATIN CALCIUM
     Route: 048
     Dates: start: 20090805
  8. REZALTAS [Concomitant]
     Active Substance: AZELNIDIPINE\OLMESARTAN MEDOXOMIL
     Route: 048
     Dates: start: 20090629

REACTIONS (2)
  - Dizziness [None]
  - Cerebellar infarction [Unknown]

NARRATIVE: CASE EVENT DATE: 20150226
